FAERS Safety Report 16327556 (Version 2)
Quarter: 2019Q3

REPORT INFORMATION
  Report Type: Report from Study
  Country: US (occurrence: US)
  Receive Date: 20190517
  Receipt Date: 20190701
  Transmission Date: 20191004
  Serious: Yes (Hospitalization)
  Sender: FDA-Public Use
  Company Number: US-ACTELION-A-NJ2019-188161

PATIENT
  Sex: Female

DRUGS (2)
  1. UPTRAVI [Suspect]
     Active Substance: SELEXIPAG
     Indication: PULMONARY ARTERIAL HYPERTENSION
     Dosage: 400 MCG, BID
     Route: 048
     Dates: start: 20190311, end: 201905
  2. UPTRAVI [Suspect]
     Active Substance: SELEXIPAG
     Dosage: 200 MCG, BID
     Route: 048

REACTIONS (20)
  - Bedridden [Unknown]
  - Gait disturbance [Unknown]
  - Quality of life decreased [Unknown]
  - Arthralgia [Recovering/Resolving]
  - Dizziness [Unknown]
  - Sinusitis [Unknown]
  - Rash pruritic [Unknown]
  - Hypopnoea [Unknown]
  - Dyspnoea [Unknown]
  - Respiratory distress [Unknown]
  - Feeling abnormal [Recovering/Resolving]
  - Diarrhoea [Unknown]
  - Headache [Recovering/Resolving]
  - Peripheral swelling [Unknown]
  - Malaise [Recovering/Resolving]
  - Vision blurred [Unknown]
  - Fatigue [Unknown]
  - Dehydration [Unknown]
  - Pain in extremity [Unknown]
  - Rehabilitation therapy [Recovering/Resolving]
